FAERS Safety Report 7224351-0 (Version None)
Quarter: 2011Q1

REPORT INFORMATION
  Report Type: 
  Country: None (occurrence: None)
  Receive Date: 20110113
  Receipt Date: 20110104
  Transmission Date: 20110831
  Serious: Yes (Life-Threatening, Other)
  Sender: FDA-Public Use
  Company Number: NL-GENZYME-CLOF-1001356

PATIENT
  Sex: Female
  Weight: 54 kg

DRUGS (14)
  1. EVOLTRA [Suspect]
     Indication: ACUTE LYMPHOCYTIC LEUKAEMIA
     Dosage: 32 MG, QDX5
     Route: 042
     Dates: start: 20101111, end: 20101115
  2. PEG-ASPARAGINASE [Suspect]
     Indication: ACUTE LYMPHOCYTIC LEUKAEMIA
     Dosage: 1600 IU, UNK
     Route: 042
     Dates: start: 20101206, end: 20101206
  3. DEXAMETHASONE [Suspect]
     Indication: PRODUCT USED FOR UNKNOWN INDICATION
     Dosage: 16 MG, UNK
     Route: 048
     Dates: start: 20101203, end: 20101213
  4. FUROSEMIDE [Concomitant]
     Indication: PRODUCT USED FOR UNKNOWN INDICATION
     Dosage: 40 MG, UNK
     Route: 042
     Dates: start: 20101212, end: 20101213
  5. DEXAMETHASONE [Suspect]
     Dosage: 4 MG, UNK
     Route: 037
     Dates: start: 20101206, end: 20101206
  6. TRAMAL [Concomitant]
     Indication: PAIN
     Dosage: 50 MG, UNK
     Route: 048
     Dates: start: 20101207, end: 20101213
  7. TEMAZEPAM [Concomitant]
     Indication: ANXIETY
     Dosage: 10 MG, UNK
     Route: 048
     Dates: start: 20101213, end: 20101213
  8. ADRIAMYCIN PFS [Suspect]
     Indication: ACUTE LYMPHOCYTIC LEUKAEMIA
     Dosage: 40 MG, UNK
     Route: 042
     Dates: start: 20101203, end: 20101210
  9. METHOTREXATE [Suspect]
     Indication: ACUTE LYMPHOCYTIC LEUKAEMIA
     Dosage: 15 MG, ONCE
     Route: 037
     Dates: start: 20101206, end: 20101206
  10. VINBLASTINE [Suspect]
     Indication: ACUTE LYMPHOCYTIC LEUKAEMIA
     Dosage: 9.6 MG, QD
     Route: 042
     Dates: start: 20101203, end: 20101210
  11. LYRICA [Concomitant]
     Indication: PAIN
     Dosage: 75 MG, UNK
     Route: 048
     Dates: start: 20101206, end: 20101213
  12. ZOFRAN [Concomitant]
     Indication: PROPHYLAXIS
     Dosage: 8 MG, UNK
     Route: 048
     Dates: start: 20101206, end: 20101213
  13. NEXIUM [Concomitant]
     Indication: PRODUCT USED FOR UNKNOWN INDICATION
     Dosage: 20 MG, UNK
     Route: 048
     Dates: start: 20101208, end: 20101213
  14. ATENOLOL [Concomitant]
     Indication: HYPERTENSION
     Dosage: 50 MG, UNK
     Route: 048
     Dates: start: 20101212, end: 20101213

REACTIONS (4)
  - RENAL FAILURE ACUTE [None]
  - CAECITIS [None]
  - SEPTIC SHOCK [None]
  - RESPIRATORY FAILURE [None]
